FAERS Safety Report 6658110-4 (Version None)
Quarter: 2010Q1

REPORT INFORMATION
  Report Type: 
  Country: None (occurrence: None)
  Receive Date: 20100330
  Receipt Date: 20100319
  Transmission Date: 20100710
  Serious: Yes (Hospitalization)
  Sender: FDA-Public Use
  Company Number: US-ELI_LILLY_AND_COMPANY-US201003005220

PATIENT
  Sex: Male

DRUGS (3)
  1. BYETTA [Suspect]
     Indication: DIABETES MELLITUS
     Route: 058
     Dates: start: 20090101, end: 20100301
  2. BYETTA [Suspect]
     Route: 058
     Dates: start: 20100301
  3. GLYBURIDE [Concomitant]
     Dates: end: 20100301

REACTIONS (3)
  - ACCIDENT [None]
  - WEIGHT DECREASED [None]
  - WEIGHT INCREASED [None]
